FAERS Safety Report 6471952-3 (Version None)
Quarter: 2009Q4

REPORT INFORMATION
  Report Type: 
  Country: None (occurrence: None)
  Receive Date: 20091203
  Receipt Date: 20080416
  Transmission Date: 20100525
  Serious: Yes (Other)
  Sender: FDA-Public Use
  Company Number: US-ELI_LILLY_AND_COMPANY-US200804004217

PATIENT
  Sex: Female

DRUGS (13)
  1. CYMBALTA [Suspect]
     Indication: DEPRESSION
     Dosage: 30 MG, UNK
     Route: 048
     Dates: start: 20071101, end: 20071201
  2. CYMBALTA [Suspect]
     Dosage: 60 MG, UNK
     Dates: start: 20071201, end: 20080107
  3. CYMBALTA [Suspect]
     Dosage: 30 MG, UNK
     Dates: start: 20080108, end: 20080115
  4. LYRICA [Concomitant]
     Dosage: UNK, UNK
     Dates: start: 20070801
  5. FEMHRT [Concomitant]
     Indication: HORMONE REPLACEMENT THERAPY
     Dosage: UNK, UNK
     Dates: start: 20080104
  6. NIFEREX FORTE [Concomitant]
     Dosage: UNK, UNK
     Dates: start: 20050101
  7. ZOLOFT [Concomitant]
     Dates: start: 20070101
  8. RESTASIS [Concomitant]
     Dosage: UNK, UNK
     Dates: start: 20030101
  9. MIRALAX [Concomitant]
     Dosage: UNK, UNK
     Dates: start: 20040101
  10. MULTI-VITAMIN [Concomitant]
  11. OYSTER SHELL CALCIUM [Concomitant]
  12. METROCREAM [Concomitant]
     Indication: ROSACEA
  13. LUNESTA [Concomitant]
     Dosage: UNK, UNK
     Dates: start: 20071101, end: 20071101

REACTIONS (6)
  - BLOOD BLISTER [None]
  - HAEMORRHAGE SUBCUTANEOUS [None]
  - PRURITUS [None]
  - RASH [None]
  - SKIN DISORDER [None]
  - SKIN EXFOLIATION [None]
